FAERS Safety Report 10386726 (Version 3)
Quarter: 2014Q3

REPORT INFORMATION
  Report Type: Spontaneous
  Country: US (occurrence: US)
  Receive Date: 20140815
  Receipt Date: 20140828
  Transmission Date: 20150326
  Serious: Yes (Hospitalization, Other)
  Sender: FDA-Public Use
  Company Number: US-009507513-2009-199672-NL

PATIENT
  Sex: Female
  Weight: 97.52 kg

DRUGS (9)
  1. SYNTHROID [Concomitant]
     Active Substance: LEVOTHYROXINE SODIUM
     Indication: PRODUCT USED FOR UNKNOWN INDICATION
     Dates: start: 2005
  2. METFORMIN [Concomitant]
     Active Substance: METFORMIN HYDROCHLORIDE
     Indication: TYPE 2 DIABETES MELLITUS
     Dosage: ALSO REPORTED AS 500MG EIGHT TIMES/DAY
     Dates: start: 1998
  3. NUVARING [Suspect]
     Active Substance: ETHINYL ESTRADIOL\ETONOGESTREL
     Dosage: CONTINUING: NO
     Route: 067
     Dates: start: 200402, end: 20070113
  4. ASPIRIN. [Concomitant]
     Active Substance: ASPIRIN
     Indication: PRODUCT USED FOR UNKNOWN INDICATION
     Dosage: 81 MG, QD
  5. LOFIBRA [Concomitant]
     Active Substance: FENOFIBRATE
     Indication: PRODUCT USED FOR UNKNOWN INDICATION
     Dosage: 134 MG, QD
  6. LEVOTHYROXINE SODIUM. [Concomitant]
     Active Substance: LEVOTHYROXINE SODIUM
     Indication: PRODUCT USED FOR UNKNOWN INDICATION
     Dosage: 50 ?G, QD
  7. TRICOR [Concomitant]
     Active Substance: FENOFIBRATE
     Indication: HYPERTRIGLYCERIDAEMIA
     Dosage: 500 MG, QD
  8. METFORMIN HYDROCHLORIDE (+) ROSIGLITAZONE MALEATE [Concomitant]
     Indication: TYPE 2 DIABETES MELLITUS
  9. LOVASTATIN (+) NIACIN [Concomitant]
     Indication: PRODUCT USED FOR UNKNOWN INDICATION
     Dosage: 1000 MG, HS
     Dates: start: 20041109

REACTIONS (10)
  - Off label use [Unknown]
  - Deep vein thrombosis [Not Recovered/Not Resolved]
  - Hypercoagulation [Unknown]
  - Female sterilisation [Unknown]
  - Pulmonary embolism [Unknown]
  - Thrombophlebitis superficial [Not Recovered/Not Resolved]
  - Colitis ulcerative [Unknown]
  - Hypertension [Unknown]
  - Infection [Unknown]
  - Endometrial ablation [Unknown]

NARRATIVE: CASE EVENT DATE: 20061022
